FAERS Safety Report 6901458-6 (Version None)
Quarter: 2010Q3

REPORT INFORMATION
  Report Type: 
  Country: None (occurrence: None)
  Receive Date: 20100803
  Receipt Date: 20080219
  Transmission Date: 20110219
  Serious: Yes (Hospitalization, Other)
  Sender: FDA-Public Use
  Company Number: US-PFIZER INC-2008004989

PATIENT
  Sex: Female
  Weight: 79.8 kg

DRUGS (8)
  1. LYRICA [Suspect]
     Indication: BACK PAIN
     Dates: start: 20071112
  2. LYRICA [Suspect]
     Indication: RADICULOPATHY
  3. LASIX [Concomitant]
  4. METFORMIN HCL [Concomitant]
  5. SYNTHROID [Concomitant]
  6. LISINOPRIL [Concomitant]
  7. CRESTOR [Concomitant]
  8. POTASSIUM [Concomitant]

REACTIONS (4)
  - ANAPHYLACTIC REACTION [None]
  - HYPOTENSION [None]
  - RASH ERYTHEMATOUS [None]
  - WHEEZING [None]
